FAERS Safety Report 7449809-0 (Version None)
Quarter: 2011Q2

REPORT INFORMATION
  Report Type: 
  Country: None (occurrence: None)
  Receive Date: 20110502
  Receipt Date: 20110419
  Transmission Date: 20111010
  Serious: Yes (Other)
  Sender: FDA-Public Use
  Company Number: ES-ELI_LILLY_AND_COMPANY-ES201104005615

PATIENT
  Sex: Female
  Weight: 77 kg

DRUGS (11)
  1. SYMBICORT FORTE [Concomitant]
     Indication: CHRONIC OBSTRUCTIVE PULMONARY DISEASE
     Dosage: 1 DF, BID
     Route: 055
  2. ATORVASTATINA [Concomitant]
     Indication: BLOOD CHOLESTEROL INCREASED
     Dosage: 1 DF, QD
     Route: 048
  3. ZOLPIDEM [Concomitant]
     Indication: INSOMNIA
     Dosage: 1 DF, QD
     Route: 048
  4. FORTEO [Suspect]
     Indication: OSTEOPOROSIS
     Dosage: 20 UG, QD
     Route: 058
     Dates: start: 20100927
  5. SPIRIVA [Concomitant]
     Indication: CHRONIC OBSTRUCTIVE PULMONARY DISEASE
     Dosage: 2 DF, QD
     Route: 055
  6. DACORTIN [Concomitant]
     Dosage: 15 MG, QD
     Route: 048
     Dates: start: 20110401
  7. ASPIRIN [Concomitant]
     Dosage: 300 MG, QD
     Route: 048
  8. TEGRETOL [Concomitant]
     Indication: EPILEPSY
     Dosage: 200 MG, QD
     Route: 048
  9. ALBUTEROL SULFATE AUTOHALER [Concomitant]
     Indication: CHRONIC OBSTRUCTIVE PULMONARY DISEASE
     Dosage: UNK, PRN
     Route: 055
  10. IDEOS [Concomitant]
     Indication: OSTEOPOROSIS
     Dosage: 1 DF, QD
     Route: 048
  11. METFORMIN HCL [Concomitant]
     Indication: DIABETES MELLITUS
     Dosage: 850 MG, QD
     Route: 048
     Dates: start: 20100101

REACTIONS (1)
  - CEREBRAL THROMBOSIS [None]
